FAERS Safety Report 24591375 (Version 7)
Quarter: 2025Q3

REPORT INFORMATION
  Report Type: Spontaneous
  Country: TW (occurrence: TW)
  Receive Date: 20241108
  Receipt Date: 20250908
  Transmission Date: 20251020
  Serious: Yes (Life-Threatening)
  Sender: SANDOZ
  Company Number: TW-002147023-NVSC2024TW083875

PATIENT
  Age: 72 Year
  Sex: Male
  Weight: 73.5 kg

DRUGS (40)
  1. CYCLOPHOSPHAMIDE [Suspect]
     Active Substance: CYCLOPHOSPHAMIDE
     Indication: Follicular lymphoma
     Route: 042
     Dates: start: 20240410
  2. FLUDARABINE [Suspect]
     Active Substance: FLUDARABINE PHOSPHATE
     Indication: Follicular lymphoma
     Route: 042
     Dates: start: 20240410
  3. ACETAMINOPHEN [Concomitant]
     Active Substance: ACETAMINOPHEN
     Indication: Cytokine release syndrome
     Route: 065
     Dates: start: 20240416, end: 20240416
  4. ACETAMINOPHEN [Concomitant]
     Active Substance: ACETAMINOPHEN
     Indication: Prophylaxis
     Route: 065
     Dates: start: 20240410, end: 20240411
  5. ACETAMINOPHEN [Concomitant]
     Active Substance: ACETAMINOPHEN
     Indication: Prophylaxis
     Route: 065
     Dates: start: 20240417, end: 20240423
  6. ALBUMIN HUMAN [Concomitant]
     Active Substance: ALBUMIN HUMAN
     Indication: Cytokine release syndrome
     Route: 065
     Dates: start: 20240418, end: 20240420
  7. AMLODIPINE BESYLATE [Concomitant]
     Active Substance: AMLODIPINE BESYLATE
     Indication: Hypertension
     Route: 065
     Dates: start: 20210613
  8. CALCIUM POLYSTYRENE SULFONATE [Concomitant]
     Active Substance: CALCIUM POLYSTYRENE SULFONATE
     Indication: Supplementation therapy
     Route: 065
     Dates: start: 20240419, end: 20240419
  9. CEFEPIME HYDROCHLORIDE [Concomitant]
     Active Substance: CEFEPIME HYDROCHLORIDE
     Indication: Sinusitis
     Route: 065
     Dates: start: 20240411, end: 20240412
  10. COTRIMOXAZOLE [Concomitant]
     Active Substance: SULFAMETHOXAZOLE\TRIMETHOPRIM
     Indication: Infection prophylaxis
     Route: 065
     Dates: start: 20240410, end: 20240527
  11. DEXAMETHASONE [Concomitant]
     Active Substance: DEXAMETHASONE
     Indication: Cytokine release syndrome
     Route: 065
     Dates: start: 20240418, end: 20240418
  12. MONTMORILLONITE [Concomitant]
     Active Substance: MONTMORILLONITE
     Indication: Diarrhoea
     Route: 065
     Dates: start: 20240419, end: 20240420
  13. MONTMORILLONITE [Concomitant]
     Active Substance: MONTMORILLONITE
     Route: 065
     Dates: start: 20240419, end: 20240421
  14. DIPHENHYDRAMINE HYDROCHLORIDE [Concomitant]
     Active Substance: DIPHENHYDRAMINE HYDROCHLORIDE
     Indication: Prophylaxis
     Route: 065
     Dates: start: 20240416, end: 20240416
  15. DIPHENHYDRAMINE HYDROCHLORIDE [Concomitant]
     Active Substance: DIPHENHYDRAMINE HYDROCHLORIDE
     Indication: Prophylaxis
  16. DOXAZOSIN MESYLATE [Concomitant]
     Active Substance: DOXAZOSIN MESYLATE
     Indication: Benign prostatic hyperplasia
     Route: 065
     Dates: start: 20230504, end: 20240419
  17. DUTASTERIDE [Concomitant]
     Active Substance: DUTASTERIDE
     Indication: Benign prostatic hyperplasia
     Route: 065
     Dates: start: 20240105, end: 20250127
  18. ERTAPENEM SODIUM [Concomitant]
     Active Substance: ERTAPENEM SODIUM
     Indication: Urinary tract infection
     Route: 065
     Dates: start: 20240412, end: 20240429
  19. ESOMEPRAZOLE MAGNESIUM [Concomitant]
     Active Substance: ESOMEPRAZOLE MAGNESIUM
     Indication: Gastrooesophageal reflux disease
     Route: 065
     Dates: start: 20191219, end: 20240924
  20. FEBUXOSTAT [Concomitant]
     Active Substance: FEBUXOSTAT
     Indication: Hyperuricaemia
     Route: 065
     Dates: start: 20240410, end: 20240412
  21. FEBUXOSTAT [Concomitant]
     Active Substance: FEBUXOSTAT
     Indication: Prophylaxis
  22. LEVOFLOXACIN [Concomitant]
     Active Substance: LEVOFLOXACIN
     Indication: Prophylaxis
     Route: 065
     Dates: start: 20240410, end: 20240411
  23. MAGNESIUM SULFATE [Concomitant]
     Active Substance: MAGNESIUM SULFATE
     Indication: Supplementation therapy
     Route: 065
     Dates: start: 20240410, end: 20240410
  24. MEGESTROL ACETATE [Concomitant]
     Active Substance: MEGESTROL ACETATE
     Indication: Decreased appetite
     Route: 065
     Dates: start: 20220128
  25. NYSTATIN [Concomitant]
     Active Substance: NYSTATIN
     Indication: Candida infection
     Route: 040
     Dates: start: 20240410, end: 20240417
  26. PALONOSETRON [Concomitant]
     Active Substance: PALONOSETRON
     Indication: Prophylaxis
     Route: 065
     Dates: start: 20240410, end: 20240410
  27. PALONOSETRON [Concomitant]
     Active Substance: PALONOSETRON
     Route: 065
     Dates: start: 20240412, end: 20240412
  28. PANTOPRAZOLE SODIUM [Concomitant]
     Active Substance: PANTOPRAZOLE SODIUM
     Indication: Gastrooesophageal reflux disease
     Route: 065
     Dates: start: 20240418
  29. TENOFOVIR ALAFENAMIDE [Concomitant]
     Active Substance: TENOFOVIR ALAFENAMIDE
     Indication: Hepatitis B
     Route: 065
     Dates: start: 20240409, end: 20240527
  30. TOCILIZUMAB [Concomitant]
     Active Substance: TOCILIZUMAB
     Route: 065
     Dates: start: 20240418
  31. TOCILIZUMAB [Concomitant]
     Active Substance: TOCILIZUMAB
     Route: 065
     Dates: start: 20240419
  32. TOCILIZUMAB [Concomitant]
     Active Substance: TOCILIZUMAB
     Indication: Follicular lymphoma
     Route: 040
     Dates: start: 20240418
  33. TOCILIZUMAB [Concomitant]
     Active Substance: TOCILIZUMAB
     Route: 040
     Dates: start: 20240419
  34. TOCILIZUMAB [Concomitant]
     Active Substance: TOCILIZUMAB
     Route: 041
     Dates: start: 20240418
  35. TOCILIZUMAB [Concomitant]
     Active Substance: TOCILIZUMAB
     Route: 041
     Dates: start: 20240418
  36. TOCILIZUMAB [Concomitant]
     Active Substance: TOCILIZUMAB
     Route: 041
     Dates: start: 20240419
  37. TOCILIZUMAB [Concomitant]
     Active Substance: TOCILIZUMAB
     Route: 041
     Dates: start: 20240419
  38. TOCILIZUMAB [Concomitant]
     Active Substance: TOCILIZUMAB
     Route: 042
     Dates: start: 20240418
  39. TOCILIZUMAB [Concomitant]
     Active Substance: TOCILIZUMAB
     Route: 042
     Dates: start: 20240418
  40. VALACYCLOVIR HYDROCHLORIDE [Concomitant]
     Active Substance: VALACYCLOVIR HYDROCHLORIDE
     Indication: Herpes zoster
     Route: 065
     Dates: start: 20240418, end: 20240812

REACTIONS (1)
  - White blood cell count decreased [Recovering/Resolving]

NARRATIVE: CASE EVENT DATE: 20240419
